FAERS Safety Report 11773485 (Version 2)
Quarter: 2015Q4

REPORT INFORMATION
  Report Type: Report from Study
  Country: CA (occurrence: CA)
  Receive Date: 20151124
  Receipt Date: 20151223
  Transmission Date: 20160304
  Serious: Yes (Other)
  Sender: FDA-Public Use
  Company Number: CA-JNJFOC-20151120623

PATIENT
  Age: 31 Year
  Sex: Female
  Weight: 77 kg

DRUGS (2)
  1. REMICADE [Suspect]
     Active Substance: INFLIXIMAB
     Indication: COLITIS ULCERATIVE
     Route: 042
  2. REMICADE [Suspect]
     Active Substance: INFLIXIMAB
     Indication: COLITIS ULCERATIVE
     Route: 042
     Dates: start: 20151112

REACTIONS (3)
  - Premature labour [Unknown]
  - Exposure during pregnancy [Recovered/Resolved]
  - No therapeutic response [Unknown]

NARRATIVE: CASE EVENT DATE: 20151119
